FAERS Safety Report 24675565 (Version 3)
Quarter: 2025Q1

REPORT INFORMATION
  Report Type: Report from Study
  Country: US (occurrence: US)
  Receive Date: 20241128
  Receipt Date: 20250130
  Transmission Date: 20250408
  Serious: Yes (Life-Threatening)
  Sender: NOVARTIS
  Company Number: US-002147023-NVSC2024US138480

PATIENT
  Sex: Female

DRUGS (1)
  1. KESIMPTA [Suspect]
     Active Substance: OFATUMUMAB
     Indication: Relapsing multiple sclerosis
     Dosage: 20 MG, QW
     Route: 058
     Dates: start: 20240623

REACTIONS (10)
  - Feeling abnormal [Unknown]
  - Mobility decreased [Recovering/Resolving]
  - Balance disorder [Recovering/Resolving]
  - Mood swings [Unknown]
  - Temperature intolerance [Not Recovered/Not Resolved]
  - Gait disturbance [Not Recovered/Not Resolved]
  - Drug ineffective [Unknown]
  - General physical health deterioration [Not Recovered/Not Resolved]
  - Weight increased [Not Recovered/Not Resolved]
  - Pruritus [Not Recovered/Not Resolved]
